FAERS Safety Report 9463772 (Version 2)
Quarter: 2013Q4

REPORT INFORMATION
  Report Type: Spontaneous
  Country: DE (occurrence: DE)
  Receive Date: 20130819
  Receipt Date: 20131104
  Transmission Date: 20140711
  Serious: Yes (Other)
  Sender: FDA-Public Use
  Company Number: DE-SHIRE-ALL1-2013-05529

PATIENT
  Age: 7 Year
  Sex: Male
  Weight: 31.2 kg

DRUGS (3)
  1. ELVANSE [Suspect]
     Indication: DISTURBANCE IN ATTENTION
     Dosage: 30 MG, 1X/DAY:QD (IN THE MORNING)
     Route: 065
     Dates: start: 20130717, end: 20130717
  2. ELVANSE [Suspect]
     Indication: MODERATE MENTAL RETARDATION
  3. ELVANSE [Suspect]
     Indication: DISTURBANCE IN SOCIAL BEHAVIOUR

REACTIONS (11)
  - Disturbance in attention [Recovered/Resolved]
  - Grimacing [Recovered/Resolved]
  - Fear [Recovered/Resolved]
  - Crying [Recovered/Resolved]
  - Hallucination, visual [Recovered/Resolved]
  - Aggression [Recovered/Resolved]
  - Logorrhoea [Recovered/Resolved]
  - Mydriasis [Recovered/Resolved]
  - Decreased appetite [Recovered/Resolved]
  - Dry mouth [Recovered/Resolved]
  - Initial insomnia [Recovered/Resolved]
